FAERS Safety Report 24078074 (Version 1)
Quarter: 2024Q3

REPORT INFORMATION
  Report Type: Spontaneous
  Country: ES (occurrence: ES)
  Receive Date: 20240711
  Receipt Date: 20240711
  Transmission Date: 20241016
  Serious: Yes (Life-Threatening, Hospitalization, Other)
  Sender: CELLTRION
  Company Number: ES-CELLTRION INC.-2024ES016412

PATIENT

DRUGS (5)
  1. RITUXIMAB [Suspect]
     Active Substance: RITUXIMAB
     Indication: B-cell lymphoma
     Dosage: 570 MILLIGRAM, 1 TOTAL
     Route: 042
     Dates: start: 20230113
  2. VINCRISTINE [Suspect]
     Active Substance: VINCRISTINE
     Indication: B-cell lymphoma
     Dosage: 2 MILLIGRAM,1 TOTAL
     Route: 042
     Dates: start: 20230113, end: 20230113
  3. CYCLOPHOSPHAMIDE [Suspect]
     Active Substance: CYCLOPHOSPHAMIDE
     Indication: B-cell lymphoma
     Dosage: 1141 MILLIGRAM, 1 TOTAL
     Route: 042
     Dates: start: 20230113, end: 20230113
  4. DOXORUBICIN [Suspect]
     Active Substance: DOXORUBICIN
     Indication: B-cell lymphoma
     Dosage: 76 MILLIGRAM, 1 TOTAL
     Route: 042
     Dates: start: 20230113, end: 20230113
  5. METHYLPREDNISOLONE [Concomitant]
     Active Substance: METHYLPREDNISOLONE
     Indication: B-cell lymphoma
     Dosage: 60 MILLIGRAM, EVERY DAY
     Route: 042
     Dates: start: 20230113, end: 20230117

REACTIONS (1)
  - Agranulocytosis [Recovered/Resolved]

NARRATIVE: CASE EVENT DATE: 20230124
